FAERS Safety Report 21003483 (Version 1)
Quarter: 2022Q2

REPORT INFORMATION
  Report Type: Spontaneous
  Country: US (occurrence: None)
  Receive Date: 20220623
  Receipt Date: 20220623
  Transmission Date: 20220720
  Serious: Yes (Hospitalization)
  Sender: FDA-Public Use
  Company Number: None

PATIENT
  Age: 71 Year
  Sex: Male

DRUGS (9)
  1. VELTASSA [Suspect]
     Active Substance: PATIROMER
     Indication: Hyperkalaemia
     Dosage: FREQUENCY : DAILY;?
     Route: 048
     Dates: start: 20220617, end: 20220621
  2. CLONIDINE [Concomitant]
     Active Substance: CLONIDINE
  3. COUMADIN [Concomitant]
     Active Substance: WARFARIN SODIUM
  4. FUROSEMIDE [Concomitant]
     Active Substance: FUROSEMIDE
  5. HYDRALAZINE [Concomitant]
     Active Substance: HYDRALAZINE HYDROCHLORIDE
  6. INVOKANA [Concomitant]
     Active Substance: CANAGLIFLOZIN
  7. ISOSORBIDE [Concomitant]
     Active Substance: ISOSORBIDE
  8. METOPROLOL [Concomitant]
     Active Substance: METOPROLOL
  9. SYNTHROID [Concomitant]
     Active Substance: LEVOTHYROXINE SODIUM

REACTIONS (5)
  - Nausea [None]
  - Headache [None]
  - Oedema peripheral [None]
  - Blister [None]
  - Cellulitis [None]

NARRATIVE: CASE EVENT DATE: 20220621
